FAERS Safety Report 4635828-6 (Version None)
Quarter: 2005Q2

REPORT INFORMATION
  Report Type: 
  Country: None (occurrence: None)
  Receive Date: 20050413
  Receipt Date: 20050324
  Transmission Date: 20051028
  Serious: Yes (Hospitalization)
  Sender: FDA-Public Use
  Company Number: 2005USFACT00455

PATIENT
  Age: 67 Year
  Sex: Female

DRUGS (11)
  1. FACTIVE [Suspect]
     Indication: RESPIRATORY TRACT INFECTION BACTERIAL
     Dates: start: 20040809, end: 20040825
  2. COUMADIN [Suspect]
     Dosage: SEE IMAGE
  3. FOSAMAX [Concomitant]
  4. FLOVENT [Concomitant]
  5. COMBIVENT [Concomitant]
  6. IPRATROPIUM BROMIDE [Concomitant]
  7. ALBUTEROL [Concomitant]
  8. POTASSIUM ACETATE [Concomitant]
  9. LASIX [Concomitant]
  10. FLONASE [Concomitant]
  11. PREDNISONE [Concomitant]

REACTIONS (8)
  - ACTIVATED PARTIAL THROMBOPLASTIN TIME PROLONGED [None]
  - ATELECTASIS [None]
  - DRUG INTERACTION [None]
  - HAEMOPTYSIS [None]
  - INTERNATIONAL NORMALISED RATIO DECREASED [None]
  - PLEURAL EFFUSION [None]
  - PNEUMONIA [None]
  - PROTHROMBIN TIME PROLONGED [None]
